FAERS Safety Report 24954738 (Version 1)
Quarter: 2025Q1

REPORT INFORMATION
  Report Type: Spontaneous
  Country: CA (occurrence: CA)
  Receive Date: 20250211
  Receipt Date: 20250211
  Transmission Date: 20250409
  Serious: Yes (Hospitalization)
  Sender: SERVIER
  Company Number: CA-SERVIER-S25000177

PATIENT

DRUGS (10)
  1. ONCASPAR [Suspect]
     Active Substance: PEGASPARGASE
     Indication: Acute lymphocytic leukaemia
     Route: 042
     Dates: start: 20241210, end: 20241210
  2. ONCASPAR [Suspect]
     Active Substance: PEGASPARGASE
     Route: 042
  3. PREDNISONE [Concomitant]
     Active Substance: PREDNISONE
     Indication: Prophylaxis
     Route: 065
     Dates: start: 20241226, end: 20250108
  4. RANITIDINE [Concomitant]
     Active Substance: RANITIDINE
     Indication: Gastrooesophageal reflux disease
     Dosage: 150 MG, BID
     Route: 048
     Dates: start: 20241128
  5. VALACYCLOVIR [Concomitant]
     Active Substance: VALACYCLOVIR HYDROCHLORIDE
     Indication: Antiviral prophylaxis
     Dosage: 500 MG, QD
     Route: 048
     Dates: start: 20241128
  6. SEPTRA DS [Concomitant]
     Active Substance: SULFAMETHOXAZOLE\TRIMETHOPRIM
     Indication: Prophylaxis
     Route: 048
     Dates: start: 20241204
  7. FLUCONAZOLE [Concomitant]
     Active Substance: FLUCONAZOLE
     Indication: Antifungal prophylaxis
     Dosage: 400 MG, QD
     Route: 048
     Dates: start: 20241201, end: 20241216
  8. CALCIUM [Concomitant]
     Active Substance: CALCIUM
     Indication: Prophylaxis
     Dosage: 1250 MG, QD
     Route: 048
     Dates: start: 20241128
  9. VITAMIN D [Concomitant]
     Active Substance: VITAMIN D NOS
     Indication: Prophylaxis
     Dosage: 1000 U, QD
     Route: 048
     Dates: start: 20241128
  10. ENOXAPARIN [Concomitant]
     Active Substance: ENOXAPARIN
     Indication: Prophylaxis
     Route: 058
     Dates: start: 20241213, end: 20241223

REACTIONS (11)
  - Drug-induced liver injury [Recovered/Resolved]
  - Fatigue [Recovered/Resolved]
  - Nausea [Recovered/Resolved]
  - Chromaturia [Recovered/Resolved]
  - Vomiting [Recovered/Resolved]
  - Alanine aminotransferase increased [Recovered/Resolved]
  - Blood alkaline phosphatase increased [Recovered/Resolved]
  - Blood bilirubin increased [Recovered/Resolved]
  - Blood albumin decreased [Recovered/Resolved]
  - International normalised ratio increased [Recovered/Resolved]
  - Hepatitis [Recovered/Resolved]

NARRATIVE: CASE EVENT DATE: 20241223
